FAERS Safety Report 17038264 (Version 1)
Quarter: 2019Q4

REPORT INFORMATION
  Report Type: Spontaneous
  Country: US (occurrence: US)
  Receive Date: 20191115
  Receipt Date: 20191115
  Transmission Date: 20200122
  Serious: No
  Sender: FDA-Public Use
  Company Number: US-ASTRAZENECA-2019SF57782

PATIENT
  Sex: Female

DRUGS (1)
  1. ZOMIG [Suspect]
     Active Substance: ZOLMITRIPTAN
     Route: 045

REACTIONS (2)
  - Hallucination [Unknown]
  - Chest pain [Unknown]
